FAERS Safety Report 20444372 (Version 1)
Quarter: 2022Q1

REPORT INFORMATION
  Report Type: Spontaneous
  Country: US (occurrence: None)
  Receive Date: 20220207
  Receipt Date: 20220207
  Transmission Date: 20220423
  Serious: Yes (Hospitalization)
  Sender: FDA-Public Use
  Company Number: None

PATIENT
  Age: 17 Year
  Sex: Male
  Weight: 44.2 kg

DRUGS (9)
  1. PAXLOVID [Suspect]
     Active Substance: NIRMATRELVIR\RITONAVIR
     Indication: SARS-CoV-2 antibody test positive
     Dosage: FREQUENCY : TWICE A DAY;?
     Route: 048
     Dates: start: 20220126, end: 20220131
  2. VINCRISTINE [Concomitant]
     Dates: start: 20220124, end: 20220124
  3. METHOTREXATE [Concomitant]
     Active Substance: METHOTREXATE
     Dates: start: 20220124, end: 20220124
  4. Intravenous methotrexate [Concomitant]
     Dates: start: 20220124, end: 20220125
  5. MERCAPTOPURINE [Concomitant]
     Active Substance: MERCAPTOPURINE
     Dates: start: 20220124, end: 20220203
  6. ONDANSETRON [Concomitant]
     Active Substance: ONDANSETRON
     Dates: start: 20220124, end: 20220203
  7. CEFTRIAXONE [Concomitant]
     Dates: start: 20220125, end: 20220126
  8. OXYCODONE [Concomitant]
     Dates: start: 20220124, end: 20220125
  9. ACETAMINOPHEN [Concomitant]
     Dates: start: 20220124, end: 20220126

REACTIONS (24)
  - Cerebrovascular accident [None]
  - Liver function test increased [None]
  - Posterior reversible encephalopathy syndrome [None]
  - Weight decreased [None]
  - Nausea [None]
  - Vomiting [None]
  - Pyrexia [None]
  - Nasal congestion [None]
  - Transaminases increased [None]
  - Headache [None]
  - Decreased appetite [None]
  - Dysarthria [None]
  - Muscle twitching [None]
  - Paraesthesia [None]
  - Facial paresis [None]
  - Dyskinesia [None]
  - Respiratory tract congestion [None]
  - Neurotoxicity [None]
  - Dysarthria [None]
  - Dysphagia [None]
  - Muscular weakness [None]
  - Hypoaesthesia [None]
  - Grip strength decreased [None]
  - Facial paralysis [None]

NARRATIVE: CASE EVENT DATE: 20220203
